FAERS Safety Report 5802599-7 (Version None)
Quarter: 2008Q2

REPORT INFORMATION
  Report Type: 
  Country: None (occurrence: None)
  Receive Date: 20080626
  Receipt Date: 20080415
  Transmission Date: 20081010
  Serious: Yes (Hospitalization)
  Sender: FDA-Public Use
  Company Number: US-CVT-080029

PATIENT
  Age: 75 Year
  Sex: Male

DRUGS (3)
  1. RANEXA [Suspect]
     Indication: DRUG USE FOR UNKNOWN INDICATION
     Dosage: ORAL
     Route: 048
  2. PROGRAF [Suspect]
     Indication: PROPHYLAXIS AGAINST TRANSPLANT REJECTION
  3. NEORAL [Suspect]
     Indication: PROPHYLAXIS AGAINST TRANSPLANT REJECTION

REACTIONS (4)
  - DRUG INTERACTION [None]
  - IMMUNOSUPPRESSANT DRUG LEVEL INCREASED [None]
  - NEUROLOGICAL SYMPTOM [None]
  - TREMOR [None]
